FAERS Safety Report 10387647 (Version 2)
Quarter: 2014Q3

REPORT INFORMATION
  Report Type: Report from Study
  Country: US (occurrence: US)
  Receive Date: 20140815
  Receipt Date: 20140815
  Transmission Date: 20150326
  Serious: Yes (Hospitalization, Other)
  Sender: FDA-Public Use
  Company Number: US-ABBVIE-12P-163-0918578-00

PATIENT
  Age: 73 Year
  Sex: Female
  Weight: 83.54 kg

DRUGS (9)
  1. OMEPRAZOLE. [Concomitant]
     Active Substance: OMEPRAZOLE
     Indication: DYSPEPSIA
     Dates: start: 2005
  2. ESCITALOPRAM OXALATE. [Concomitant]
     Active Substance: ESCITALOPRAM OXALATE
     Indication: ANXIETY
     Dates: start: 20080121, end: 200904
  3. BALSALAZIDE DISODIUM. [Concomitant]
     Active Substance: BALSALAZIDE DISODIUM
     Indication: COLITIS ULCERATIVE
     Dates: start: 20100421
  4. ESCITALOPRAM OXALATE. [Concomitant]
     Active Substance: ESCITALOPRAM OXALATE
     Dates: start: 20091201
  5. PRITOR [Concomitant]
     Active Substance: TELMISARTAN
     Indication: HYPERTENSION
     Dates: start: 20100308
  6. PARACETAMOL [Concomitant]
     Active Substance: ACETAMINOPHEN
     Indication: HEADACHE
     Dates: start: 1990
  7. OLMESARTAN MEDOXOMIL [Concomitant]
     Active Substance: OLMESARTAN MEDOXOMIL
     Indication: BLOOD PRESSURE INCREASED
     Dates: start: 20091201
  8. CENTRUM [Concomitant]
     Active Substance: VITAMINS
     Indication: NUTRITIONAL SUPPLEMENTATION
     Dates: start: 200709
  9. HUMIRA [Suspect]
     Active Substance: ADALIMUMAB
     Indication: COLITIS ULCERATIVE
     Route: 058
     Dates: start: 20080822, end: 20120302

REACTIONS (1)
  - Endometrial cancer [Recovered/Resolved]

NARRATIVE: CASE EVENT DATE: 20120321
